FAERS Safety Report 16860620 (Version 3)
Quarter: 2019Q4

REPORT INFORMATION
  Report Type: Report from Study
  Country: JP (occurrence: JP)
  Receive Date: 20190927
  Receipt Date: 20191227
  Transmission Date: 20200122
  Serious: Yes (Death, Hospitalization)
  Sender: FDA-Public Use
  Company Number: JP-PFIZER INC-2019413929

PATIENT
  Age: 85 Year
  Sex: Female
  Weight: 48 kg

DRUGS (22)
  1. PREDONINE [Suspect]
     Active Substance: PREDNISOLONE
     Dosage: 7 MG, DAILY
     Route: 048
     Dates: start: 20161005, end: 20161103
  2. PREDONINE [Suspect]
     Active Substance: PREDNISOLONE
     Dosage: 6 MG, DAILY
     Route: 048
     Dates: start: 20161104, end: 20161212
  3. PREDONINE [Suspect]
     Active Substance: PREDNISOLONE
     Dosage: 5.5 MG, DAILY
     Route: 048
     Dates: start: 20170111, end: 20170206
  4. XELJANZ [Suspect]
     Active Substance: TOFACITINIB CITRATE
     Indication: RHEUMATOID ARTHRITIS
     Dosage: 5 MG, 1X/DAY
     Route: 048
     Dates: start: 20160601, end: 20160809
  5. XELJANZ [Suspect]
     Active Substance: TOFACITINIB CITRATE
     Dosage: 5 MG, 1X/DAY
     Route: 048
     Dates: start: 20160831, end: 20161213
  6. PREDONINE [Suspect]
     Active Substance: PREDNISOLONE
     Dosage: 7.5 MG, DAILY
     Route: 048
     Dates: start: 20160831, end: 20161004
  7. PREDONINE [Suspect]
     Active Substance: PREDNISOLONE
     Dosage: 10 MG, DAILY
     Route: 048
     Dates: start: 20161213, end: 20161217
  8. PREDONINE [Suspect]
     Active Substance: PREDNISOLONE
     Dosage: 6 MG, DAILY
     Route: 048
     Dates: start: 20161218, end: 20170110
  9. PREDONINE [Suspect]
     Active Substance: PREDNISOLONE
     Dosage: 5 MG, DAILY
     Route: 048
     Dates: start: 20170207, end: 20170403
  10. IRSOGLADINE MALEATE [Concomitant]
     Active Substance: IRSOGLADINE MALEATE
     Route: 048
  11. XELJANZ [Suspect]
     Active Substance: TOFACITINIB CITRATE
     Dosage: 7.5 MG, DAILY (7.5 MG DIVIDED INTO TWICE)
     Route: 048
     Dates: start: 20160810, end: 20160830
  12. MAGMITT [Concomitant]
     Active Substance: MAGNESIUM OXIDE
     Route: 048
  13. PREDONINE [Suspect]
     Active Substance: PREDNISOLONE
     Dosage: 7.5 MG, DAILY
     Route: 048
     Dates: end: 20160516
  14. PREDONINE [Suspect]
     Active Substance: PREDNISOLONE
     Dosage: 7 MG, DAILY
     Route: 048
     Dates: start: 20160714, end: 20160809
  15. PREDONINE [Suspect]
     Active Substance: PREDNISOLONE
     Dosage: 8 MG, DAILY
     Route: 048
     Dates: start: 20160810, end: 20160830
  16. PREDONINE [Suspect]
     Active Substance: PREDNISOLONE
     Dosage: 4.5 MG, DAILY
     Route: 048
     Dates: start: 20170404, end: 20180109
  17. CALFINA [Concomitant]
     Active Substance: ALFACALCIDOL
     Route: 048
  18. XELJANZ [Suspect]
     Active Substance: TOFACITINIB CITRATE
     Dosage: 5 MG, 1X/DAY
     Route: 048
     Dates: start: 20161223, end: 20171016
  19. BAYASPIRIN [Suspect]
     Active Substance: ASPIRIN
     Indication: HEMIPLEGIA
     Dosage: UNK
     Route: 048
     Dates: start: 20160818
  20. PREDONINE [Suspect]
     Active Substance: PREDNISOLONE
     Dosage: 10 MG, DAILY
     Route: 048
     Dates: start: 20160517, end: 20160622
  21. PREDONINE [Suspect]
     Active Substance: PREDNISOLONE
     Dosage: 8 MG, DAILY
     Route: 048
     Dates: start: 20160623, end: 20160713
  22. DAIPHEN [Concomitant]
     Active Substance: SULFAMETHOXAZOLE\TRIMETHOPRIM
     Indication: ANTIFUNGAL PROPHYLAXIS
     Dosage: UNK
     Route: 048
     Dates: end: 20180109

REACTIONS (1)
  - Cerebellar haemorrhage [Fatal]

NARRATIVE: CASE EVENT DATE: 20171017
